FAERS Safety Report 5361594-5 (Version None)
Quarter: 2007Q2

REPORT INFORMATION
  Report Type: 
  Country: None (occurrence: None)
  Receive Date: 20070615
  Receipt Date: 20070615
  Transmission Date: 20071010
  Serious: Yes (Other)
  Sender: FDA-Public Use
  Company Number: None

PATIENT
  Age: 27 Year
  Sex: Male
  Weight: 132.4503 kg

DRUGS (1)
  1. BUPROPION HYDROCHLORIDE [Suspect]
     Indication: DEPRESSION
     Dosage: 100MG SR DAILY PO
     Route: 048
     Dates: start: 20070401

REACTIONS (3)
  - DISTURBANCE IN ATTENTION [None]
  - EDUCATIONAL PROBLEM [None]
  - PHARMACEUTICAL PRODUCT COMPLAINT [None]
